FAERS Safety Report 7247187-3 (Version None)
Quarter: 2011Q1

REPORT INFORMATION
  Report Type: 
  Country: None (occurrence: None)
  Receive Date: 20110127
  Receipt Date: 20110118
  Transmission Date: 20110831
  Serious: Yes (Other)
  Sender: FDA-Public Use
  Company Number: US-JNJFOC-20101100767

PATIENT
  Sex: Male
  Weight: 90.72 kg

DRUGS (12)
  1. ASMANEX TWISTHALER [Concomitant]
     Indication: ASTHMA
  2. ASACOL [Concomitant]
     Indication: CROHN'S DISEASE
     Route: 048
  3. IMURAN [Concomitant]
  4. AZATHIOPRINE [Concomitant]
     Indication: CROHN'S DISEASE
     Route: 048
  5. VICODIN [Concomitant]
     Indication: CROHN'S DISEASE
  6. FLEXERIL [Concomitant]
  7. MULTIVITAMINES [Concomitant]
  8. REMICADE [Suspect]
     Indication: CROHN'S DISEASE
     Route: 042
  9. ADVAIR [Concomitant]
     Indication: ASTHMA
     Route: 055
  10. PROAIR HFA [Concomitant]
     Indication: ASTHMA
  11. MOTRIN [Concomitant]
     Indication: CROHN'S DISEASE
  12. ASACOL [Concomitant]

REACTIONS (2)
  - SPERM CONCENTRATION DECREASED [None]
  - INFERTILITY [None]
